FAERS Safety Report 6938695-0 (Version None)
Quarter: 2010Q3

REPORT INFORMATION
  Report Type: 
  Country: None (occurrence: None)
  Receive Date: 20100824
  Receipt Date: 20100813
  Transmission Date: 20110219
  Serious: Yes (Other)
  Sender: FDA-Public Use
  Company Number: PHHY2010US54492

PATIENT
  Sex: Female

DRUGS (7)
  1. ENABLEX [Suspect]
     Dosage: 15 MG ONCE DAILY
     Route: 048
  2. ARICEPT [Suspect]
  3. SINEMET [Concomitant]
  4. MIRAPEX [Concomitant]
  5. COMAGEN [Concomitant]
  6. NAMENDA [Concomitant]
  7. ATENOLOL [Concomitant]

REACTIONS (3)
  - CARDIAC DISORDER [None]
  - DEHYDRATION [None]
  - POLLAKIURIA [None]
